FAERS Safety Report 4637034-8 (Version None)
Quarter: 2005Q2

REPORT INFORMATION
  Report Type: 
  Country: None (occurrence: None)
  Receive Date: 20050328
  Receipt Date: 20041203
  Transmission Date: 20051028
  Serious: No
  Sender: FDA-Public Use
  Company Number: USA041285159

PATIENT
  Age: 43 Year
  Sex: Female

DRUGS (2)
  1. STRATTERA [Suspect]
     Indication: DEPRESSION
     Dosage: 25 MG DAY
     Dates: start: 20041126
  2. TRAZODONE [Concomitant]

REACTIONS (2)
  - DEPRESSED MOOD [None]
  - EXCITABILITY [None]
